FAERS Safety Report 13598749 (Version 2)
Quarter: 2017Q2

REPORT INFORMATION
  Report Type: Spontaneous
  Country: US (occurrence: US)
  Receive Date: 20170531
  Receipt Date: 20170531
  Transmission Date: 20170830
  Serious: No
  Sender: FDA-Public Use
  Company Number: US-BAYER-2017-095609

PATIENT
  Age: 65 Year
  Sex: Female

DRUGS (1)
  1. ESTRADIOL HEMIHYDRATE (PATCH) [Suspect]
     Active Substance: ESTRADIOL HEMIHYDRATE
     Dosage: UNK
     Route: 062
     Dates: start: 20170503, end: 20170510

REACTIONS (2)
  - Application site burn [Recovering/Resolving]
  - Application site pain [Recovering/Resolving]

NARRATIVE: CASE EVENT DATE: 201705
